FAERS Safety Report 11682751 (Version 1)
Quarter: 2015Q4

REPORT INFORMATION
  Report Type: Spontaneous
  Country: US (occurrence: US)
  Receive Date: 20151029
  Receipt Date: 20151029
  Transmission Date: 20160304
  Serious: Yes (Other)
  Sender: FDA-Public Use
  Company Number: US-THROMBOGENICS NV-SPO-2014-0119

PATIENT
  Sex: Female

DRUGS (2)
  1. JETREA [Suspect]
     Active Substance: OCRIPLASMIN
     Indication: VITREOUS ADHESIONS
     Dosage: 0.125 MG, ONE TIME DOSE
     Route: 031
  2. JETREA [Suspect]
     Active Substance: OCRIPLASMIN
     Indication: MACULAR HOLE

REACTIONS (5)
  - Retinogram abnormal [Recovering/Resolving]
  - Retinal injury [Recovering/Resolving]
  - Photopsia [Unknown]
  - Chromatopsia [Unknown]
  - Visual impairment [Unknown]
